FAERS Safety Report 9284664 (Version 5)
Quarter: 2014Q1

REPORT INFORMATION
  Report Type: Report from Study
  Country: PT (occurrence: PT)
  Receive Date: 20130513
  Receipt Date: 20140318
  Transmission Date: 20141002
  Serious: Yes (Hospitalization)
  Sender: FDA-Public Use
  Company Number: PT-009507513-1305PRT004301

PATIENT
  Age: 35 Year
  Sex: Male
  Weight: 75.5 kg

DRUGS (10)
  1. BOCEPREVIR [Suspect]
     Indication: CHRONIC HEPATITIS C
     Dosage: 4 DF, ONCE
     Route: 048
     Dates: start: 20130315, end: 20130315
  2. BOCEPREVIR [Suspect]
     Dosage: 4 DF, TID
     Route: 048
     Dates: start: 20130316, end: 20130502
  3. BOCEPREVIR [Suspect]
     Dosage: 4 DF, ONCE
     Route: 048
     Dates: start: 20130503, end: 20130503
  4. RIBAVIRIN [Suspect]
     Indication: CHRONIC HEPATITIS C
     Dosage: 3 DF, QPM
     Route: 048
     Dates: start: 20130215, end: 20130215
  5. RIBAVIRIN [Suspect]
     Dosage: 3 DF, BID
     Route: 048
     Dates: start: 20130216, end: 20130502
  6. RIBAVIRIN [Suspect]
     Dosage: 3 DF, QAM
     Route: 048
     Dates: start: 20130503, end: 20130503
  7. RIBAVIRIN [Suspect]
     Dosage: 3 DF, QPM
     Route: 048
     Dates: start: 20130506, end: 20130506
  8. RIBAVIRIN [Suspect]
     Dosage: 3 DF, BID
     Route: 048
     Dates: start: 20130507, end: 20130802
  9. PEGASYS [Suspect]
     Indication: CHRONIC HEPATITIS C
     Dosage: 180 MICROGRAM, QW
     Route: 058
     Dates: start: 20130215, end: 20130426
  10. PEGASYS [Suspect]
     Dosage: 180 MICROGRAM, QW
     Route: 058
     Dates: start: 20130510, end: 20130802

REACTIONS (1)
  - Rash [Recovered/Resolved]
